FAERS Safety Report 13114798 (Version 3)
Quarter: 2019Q4

REPORT INFORMATION
  Report Type: Spontaneous
  Country: JP (occurrence: JP)
  Receive Date: 20170113
  Receipt Date: 20191202
  Transmission Date: 20200122
  Serious: Yes (Other)
  Sender: FDA-Public Use
  Company Number: JP-GILEAD-2016-0236150

PATIENT
  Age: 62 Year
  Sex: Female
  Weight: 51 kg

DRUGS (16)
  1. TACROLIMUS. [Concomitant]
     Active Substance: TACROLIMUS
     Dosage: 4 MG, UNK
     Dates: start: 201601
  2. TACROLIMUS. [Concomitant]
     Active Substance: TACROLIMUS
     Dosage: 2 MG, UNK
     Dates: start: 201602
  3. METHYLPREDNISOLONE SODIUM SUCCINATE. [Concomitant]
     Active Substance: METHYLPREDNISOLONE SODIUM SUCCINATE
     Dosage: 40 MG, UNK
  4. HARVONI [Suspect]
     Active Substance: LEDIPASVIR\SOFOSBUVIR
     Indication: HEPATIC CIRRHOSIS
  5. METHYLPREDNISOLONE SODIUM SUCCINATE. [Concomitant]
     Active Substance: METHYLPREDNISOLONE SODIUM SUCCINATE
     Indication: LIVER TRANSPLANT REJECTION
     Dosage: 160 MG, UNK
  6. METHYLPREDNISOLONE. [Concomitant]
     Active Substance: METHYLPREDNISOLONE
     Dosage: 24 MG, UNK
     Route: 048
  7. THYMOGLOBULINE [Concomitant]
     Active Substance: LAPINE T-LYMPHOCYTE IMMUNE GLOBULIN
     Indication: LIVER TRANSPLANT REJECTION
  8. TACROLIMUS. [Concomitant]
     Active Substance: TACROLIMUS
     Dosage: 8 MG, UNK
     Dates: start: 201511
  9. HARVONI [Suspect]
     Active Substance: LEDIPASVIR\SOFOSBUVIR
     Indication: HEPATITIS C
     Dosage: 400 MG, UNK
     Route: 048
     Dates: start: 20151229, end: 20160127
  10. RITUXAN [Concomitant]
     Active Substance: RITUXIMAB
     Indication: DONOR SPECIFIC ANTIBODY PRESENT
  11. TACROLIMUS. [Concomitant]
     Active Substance: TACROLIMUS
     Dosage: 6 MG, UNK
     Dates: start: 201512
  12. METHYLPREDNISOLONE SODIUM SUCCINATE. [Concomitant]
     Active Substance: METHYLPREDNISOLONE SODIUM SUCCINATE
     Dosage: 80 MG, UNK
  13. METHYLPREDNISOLONE. [Concomitant]
     Active Substance: METHYLPREDNISOLONE
     Dosage: 32 MG, UNK
     Route: 048
  14. TACROLIMUS. [Concomitant]
     Active Substance: TACROLIMUS
     Indication: IMMUNOSUPPRESSION
     Dosage: 10 MG, UNK
     Dates: start: 201510
  15. HARVONI [Suspect]
     Active Substance: LEDIPASVIR\SOFOSBUVIR
     Indication: HEPATITIS C
  16. METHYLPREDNISOLONE. [Concomitant]
     Active Substance: METHYLPREDNISOLONE
     Indication: LIVER TRANSPLANT REJECTION
     Dosage: 40 MG, UNK
     Route: 048

REACTIONS (4)
  - Cytomegalovirus viraemia [Unknown]
  - Pneumocystis jirovecii pneumonia [Recovered/Resolved]
  - Drug level increased [Unknown]
  - Decreased immune responsiveness [Unknown]

NARRATIVE: CASE EVENT DATE: 201601
